FAERS Safety Report 20465490 (Version 2)
Quarter: 2022Q1

REPORT INFORMATION
  Report Type: Report from Study
  Country: KR (occurrence: KR)
  Receive Date: 20220212
  Receipt Date: 20220222
  Transmission Date: 20220423
  Serious: Yes (Hospitalization)
  Sender: FDA-Public Use
  Company Number: KR-REGENERON PHARMACEUTICALS, INC.-2022-22517

PATIENT

DRUGS (10)
  1. CEMIPLIMAB [Suspect]
     Active Substance: CEMIPLIMAB
     Indication: Squamous cell carcinoma
     Dosage: 350 MG, Q3W
     Route: 042
     Dates: start: 20210901
  2. INVESTIGATIONAL PRODUCT [Suspect]
     Active Substance: INVESTIGATIONAL PRODUCT
     Indication: Squamous cell carcinoma
     Dosage: 100 MCG/PEPTIDE BY SC INJECTION ON DAY 1, DAY 29, AND DAY 50 (TOTAL OF 3 DOSES)
     Route: 058
     Dates: start: 20210825
  3. DALTEPARIN SODIUM [Concomitant]
     Active Substance: DALTEPARIN SODIUM
     Indication: Deep vein thrombosis
     Dosage: 10000 UNIT, QD
     Route: 058
     Dates: start: 202010
  4. HEPARIN SODIUM [Concomitant]
     Active Substance: HEPARIN SODIUM
     Indication: Prophylaxis
     Dosage: 600 UNIT, ONCE
     Route: 042
     Dates: start: 20210622
  5. MUPIROCIN [Concomitant]
     Active Substance: MUPIROCIN
     Indication: Prophylaxis
     Dosage: 10 G, QD
     Route: 062
     Dates: start: 20210702
  6. ESTRIOL [Concomitant]
     Active Substance: ESTRIOL
     Indication: Prophylaxis
     Dosage: 0.5 MG, HS
     Route: 067
     Dates: start: 20210804
  7. ACETAMINOPHEN [Concomitant]
     Active Substance: ACETAMINOPHEN
     Indication: Prophylaxis
     Dosage: 650 MG, TID
     Route: 048
     Dates: start: 20210901
  8. LEVOTHYROXINE SODIUM [Concomitant]
     Active Substance: LEVOTHYROXINE SODIUM
     Indication: Thyroiditis
     Dosage: 50 MCG, DAILY-1
     Route: 048
     Dates: start: 20211101
  9. CEFPODOXIME [Concomitant]
     Active Substance: CEFPODOXIME
     Indication: Device related infection
     Dosage: 100 MG, BID
     Route: 048
     Dates: start: 20220126
  10. PHAZYME COMPLEX [Concomitant]
     Indication: Device related infection
     Dosage: 1 DF, BID
     Route: 048
     Dates: start: 20220126

REACTIONS (1)
  - Pericardial effusion [Recovering/Resolving]

NARRATIVE: CASE EVENT DATE: 20220127
